FAERS Safety Report 14575459 (Version 1)
Quarter: 2018Q1

REPORT INFORMATION
  Report Type: Spontaneous
  Country: US (occurrence: US)
  Receive Date: 20180227
  Receipt Date: 20180227
  Transmission Date: 20180509
  Serious: No
  Sender: FDA-Public Use
  Company Number: US-ROCHE-1957009

PATIENT
  Sex: Female

DRUGS (3)
  1. XOLAIR [Suspect]
     Active Substance: OMALIZUMAB
     Indication: IDIOPATHIC URTICARIA
     Dosage: 1.2ML, 150MG
     Route: 058
     Dates: start: 20160719
  2. XOLAIR [Suspect]
     Active Substance: OMALIZUMAB
     Indication: COMPLEMENT FACTOR ABNORMAL
     Route: 058
     Dates: start: 20160621
  3. XOLAIR [Suspect]
     Active Substance: OMALIZUMAB
     Indication: PRODUCT USED FOR UNKNOWN INDICATION
     Route: 042
     Dates: start: 20160621

REACTIONS (7)
  - Swelling face [Unknown]
  - Tongue blistering [Unknown]
  - Arthritis [Unknown]
  - Peripheral swelling [Unknown]
  - Joint swelling [Unknown]
  - Swollen tongue [Unknown]
  - Sinusitis [Unknown]
